FAERS Safety Report 5740801-0 (Version None)
Quarter: 2008Q2

REPORT INFORMATION
  Report Type: 
  Country: None (occurrence: None)
  Receive Date: 20080515
  Receipt Date: 20080222
  Transmission Date: 20081010
  Serious: No
  Sender: FDA-Public Use
  Company Number: WAES 0802USA05201

PATIENT
  Sex: Male

DRUGS (1)
  1. ISENTRESS [Suspect]
     Indication: HIV INFECTION
     Dosage: 400 MG/BID/PO
     Route: 048
     Dates: start: 20080215

REACTIONS (3)
  - ARTHRALGIA [None]
  - RASH MACULO-PAPULAR [None]
  - RASH PRURITIC [None]
